FAERS Safety Report 9641876 (Version 1)
Quarter: 2013Q4

REPORT INFORMATION
  Report Type: Spontaneous
  Country: IT (occurrence: None)
  Receive Date: 20131021
  Receipt Date: 20131021
  Transmission Date: 20140711
  Serious: Yes (Hospitalization)
  Sender: FDA-Public Use
  Company Number: KAD201310-001350

PATIENT
  Age: 47 Year
  Sex: Male

DRUGS (3)
  1. RIBAVIRIN [Suspect]
     Indication: HEPATITIS C
     Dates: start: 201203, end: 20130627
  2. INCIVO [Suspect]
     Indication: HEPATITIS C
     Dosage: FILM COATED TABLET, 6 DOSAGE UNIT, DAILY, 6 DOSAGE FORMS, DAILY, ORAL
     Route: 048
     Dates: start: 20130321, end: 20130611
  3. PEGASYS (PEGINTERFERON ALFA-2A) [Suspect]
     Indication: HEPATITIS C
     Dosage: INJECTABLE SOLUTION, 180 MCG, SUBCUTANEOUS
     Route: 058

REACTIONS (4)
  - Anaemia [None]
  - Impetigo [None]
  - Rash [None]
  - Erythema [None]
